FAERS Safety Report 4672577-2 (Version None)
Quarter: 2005Q2

REPORT INFORMATION
  Report Type: 
  Country: None (occurrence: None)
  Receive Date: 20050524
  Receipt Date: 20010109
  Transmission Date: 20051028
  Serious: Yes (Death, Life-Threatening)
  Sender: FDA-Public Use
  Company Number: FR-GLAXOSMITHKLINE-B0244374A

PATIENT
  Sex: Male
  Weight: 1.3 kg

DRUGS (3)
  1. TIMENTIN [Suspect]
     Indication: ENTEROCOLITIS
     Dates: start: 20010104, end: 20010107
  2. AMIKACIN [Concomitant]
     Indication: ENTEROCOLITIS
     Dates: start: 20010104, end: 20010106
  3. VANCOMYCIN [Concomitant]
     Indication: ENTEROCOLITIS
     Dates: start: 20010104, end: 20010107

REACTIONS (23)
  - ACCIDENTAL OVERDOSE [None]
  - ANAEMIA [None]
  - ANAEMIA NEONATAL [None]
  - DEATH [None]
  - HAEMATURIA [None]
  - HAPTOGLOBIN DECREASED [None]
  - HYPONATRAEMIA [None]
  - LEUKOPENIA NEONATAL [None]
  - METABOLIC ACIDOSIS [None]
  - NEONATAL HYPONATRAEMIA [None]
  - NEPHRITIS [None]
  - NEUTROPENIA [None]
  - NEUTROPENIA NEONATAL [None]
  - OEDEMA [None]
  - OEDEMA NEONATAL [None]
  - OLIGURIA [None]
  - OVERDOSE [None]
  - PANCYTOPENIA [None]
  - PROTEINURIA [None]
  - RENAL FAILURE ACUTE [None]
  - RESPIRATORY TRACT INFECTION [None]
  - THROMBOCYTOPENIA [None]
  - THROMBOCYTOPENIA NEONATAL [None]
